FAERS Safety Report 13109715 (Version 1)
Quarter: 2017Q1

REPORT INFORMATION
  Report Type: Spontaneous
  Country: US (occurrence: US)
  Receive Date: 20170112
  Receipt Date: 20170112
  Transmission Date: 20170428
  Serious: No
  Sender: FDA-Public Use
  Company Number: None

PATIENT
  Age: 55 Year
  Sex: Male
  Weight: 100.2 kg

DRUGS (1)
  1. INFLIXIMAB [Suspect]
     Active Substance: INFLIXIMAB
     Indication: CROHN^S DISEASE
     Dosage: OTHER
     Route: 042
     Dates: start: 20160211, end: 20160311

REACTIONS (2)
  - Rash [None]
  - Pustular psoriasis [None]

NARRATIVE: CASE EVENT DATE: 20160211
